FAERS Safety Report 10150354 (Version 1)
Quarter: 2014Q2

REPORT INFORMATION
  Report Type: Spontaneous
  Country: US (occurrence: US)
  Receive Date: 20140502
  Receipt Date: 20140502
  Transmission Date: 20141212
  Serious: Yes (Hospitalization, Other)
  Sender: FDA-Public Use
  Company Number: US-ASTRAZENECA-2014SE28712

PATIENT
  Age: 61 Year
  Sex: Female
  Weight: 45.4 kg

DRUGS (14)
  1. SYMBICORT  PMDI [Suspect]
     Indication: EMPHYSEMA
     Dosage: 160/4.5 MCG, 2 PUFFS THREE TIMES A DAY
     Route: 055
     Dates: start: 2013
  2. CYMBALTA [Concomitant]
     Indication: DEPRESSION
     Route: 048
  3. VALIUM [Concomitant]
     Indication: DEPRESSION
     Route: 048
  4. XANAX [Concomitant]
     Indication: DEPRESSION
     Route: 048
  5. XANAX [Concomitant]
     Indication: FAMILIAL RISK FACTOR
     Route: 048
  6. OXYCONTIN [Concomitant]
     Indication: MUSCULOSKELETAL CHEST PAIN
     Route: 048
  7. OXYCONTIN [Concomitant]
     Indication: BACK PAIN
     Route: 048
  8. OXYCONTIN [Concomitant]
     Indication: DYSPNOEA
     Route: 048
  9. OXYCODONE [Concomitant]
     Indication: BACK PAIN
     Route: 048
     Dates: start: 201401
  10. PERCOCET [Concomitant]
     Indication: BACK PAIN
     Route: 048
     Dates: start: 2011
  11. PROAIR [Concomitant]
  12. SOMETHING FOR CHOLESTEROL [Concomitant]
     Indication: BLOOD CHOLESTEROL ABNORMAL
  13. SOMETHING FOR ALLERGIES [Concomitant]
     Indication: MULTIPLE ALLERGIES
     Dosage: DAILY
  14. ADVAIR [Concomitant]

REACTIONS (12)
  - Loss of consciousness [Unknown]
  - Fall [Unknown]
  - Lung disorder [Unknown]
  - Pneumonia [Unknown]
  - Abasia [Unknown]
  - Dyspnoea [Unknown]
  - Exposure via inhalation [Unknown]
  - Feeling abnormal [Unknown]
  - Restlessness [Unknown]
  - Dizziness [Unknown]
  - Off label use [Unknown]
  - Intentional product misuse [Unknown]
